FAERS Safety Report 5800506-4 (Version None)
Quarter: 2008Q3

REPORT INFORMATION
  Report Type: 
  Country: None (occurrence: None)
  Receive Date: 20080703
  Receipt Date: 20080627
  Transmission Date: 20090109
  Serious: Yes (Other)
  Sender: FDA-Public Use
  Company Number: B0527088A

PATIENT
  Age: 40 Year
  Sex: Female

DRUGS (5)
  1. RANIPLEX [Suspect]
  2. ALDACTONE [Suspect]
     Dosage: 75MG PER DAY
     Route: 048
     Dates: end: 20071207
  3. ZOLOFT [Suspect]
     Dosage: 50MG PER DAY
     Route: 048
     Dates: end: 20071123
  4. LYSANXIA [Suspect]
     Route: 048
     Dates: end: 20071207
  5. OMEPRAZOLE [Suspect]

REACTIONS (3)
  - ABORTION INDUCED [None]
  - DRUG EXPOSURE DURING PREGNANCY [None]
  - GESTATIONAL DIABETES [None]
